FAERS Safety Report 23983883 (Version 1)
Quarter: 2024Q2

REPORT INFORMATION
  Report Type: Report from Study
  Country: CA (occurrence: CA)
  Receive Date: 20240618
  Receipt Date: 20240618
  Transmission Date: 20240716
  Serious: Yes (Death, Hospitalization)
  Sender: FDA-Public Use
  Company Number: CA-JNJFOC-20240624018

PATIENT
  Age: 79 Year
  Sex: Female
  Weight: 74 kg

DRUGS (1)
  1. IBRUTINIB [Suspect]
     Active Substance: IBRUTINIB
     Indication: Chronic lymphocytic leukaemia
     Route: 048
     Dates: start: 20200401

REACTIONS (3)
  - Death [Fatal]
  - Fungal infection [Unknown]
  - Chronic lymphocytic leukaemia [Unknown]

NARRATIVE: CASE EVENT DATE: 20200512
